FAERS Safety Report 6045967-3 (Version None)
Quarter: 2009Q1

REPORT INFORMATION
  Report Type: 
  Country: None (occurrence: None)
  Receive Date: 20090116
  Receipt Date: 20090105
  Transmission Date: 20090719
  Serious: Yes (Death, Hospitalization)
  Sender: FDA-Public Use
  Company Number: DSA_32999_2009

PATIENT
  Age: 47 Year
  Sex: Female

DRUGS (5)
  1. LORAZEPAM [Suspect]
     Indication: DRUG USE FOR UNKNOWN INDICATION
     Dosage: (DF ORAL)
     Route: 048
  2. BUPROPION HCL ER (NOT SPECIFIED) [Suspect]
     Indication: DRUG USE FOR UNKNOWN INDICATION
     Dosage: (DF ORAL)
     Route: 048
  3. FLUOXETINE HCL [Suspect]
     Indication: DRUG USE FOR UNKNOWN INDICATION
     Dosage: (DF ORAL)
  4. CYPROHEPTADINE [Suspect]
     Indication: DRUG USE FOR UNKNOWN INDICATION
     Dosage: (DF ORAL)
  5. ACETAMINOPHEN W/OXYCODONE (NOT SPECIFIED) [Suspect]
     Indication: DRUG USE FOR UNKNOWN INDICATION
     Dosage: (DF ORAL)
     Route: 048

REACTIONS (12)
  - AGGRESSION [None]
  - AGITATION [None]
  - CARDIAC ARREST [None]
  - CONVULSION [None]
  - HALLUCINATION [None]
  - HEPATIC NECROSIS [None]
  - HYPOTENSION [None]
  - LETHARGY [None]
  - LOBAR PNEUMONIA [None]
  - OVERDOSE [None]
  - RESTLESSNESS [None]
  - VOMITING [None]
